FAERS Safety Report 4283956-X (Version None)
Quarter: 2004Q1

REPORT INFORMATION
  Report Type: 
  Country: None (occurrence: None)
  Receive Date: 20040202
  Receipt Date: 20040128
  Transmission Date: 20041129
  Serious: Yes (Hospitalization)
  Sender: FDA-Public Use
  Company Number: WAES 0401USA02072

PATIENT

DRUGS (2)
  1. PRIMAXIN [Suspect]
     Indication: ABDOMINAL INFECTION
     Route: 042
  2. INVANZ [Suspect]
     Indication: INFECTION
     Route: 042

REACTIONS (3)
  - ABDOMINAL INFECTION [None]
  - CROSS SENSITIVITY REACTION [None]
  - PSEUDOMONAS INFECTION [None]
